FAERS Safety Report 7284884-8 (Version None)
Quarter: 2011Q1

REPORT INFORMATION
  Report Type: 
  Country: None (occurrence: None)
  Receive Date: 20110210
  Receipt Date: 20110126
  Transmission Date: 20110831
  Serious: Yes (Hospitalization, Other)
  Sender: FDA-Public Use
  Company Number: US-CELGENEUS-163-21880-11012801

PATIENT
  Sex: Female
  Weight: 136 kg

DRUGS (7)
  1. AMBIEN [Concomitant]
     Route: 065
  2. DEXAMETHASONE [Concomitant]
     Route: 065
  3. FUROSEMIDE [Concomitant]
     Route: 065
  4. SYNTHROID [Concomitant]
     Route: 065
  5. MULTI-VITAMINS [Concomitant]
     Route: 065
  6. REVLIMID [Suspect]
     Indication: MULTIPLE MYELOMA
     Route: 048
     Dates: start: 20100201
  7. GLUCOSAMINE/CHONDRITIN [Concomitant]
     Dosage: 500-400
     Route: 065

REACTIONS (4)
  - PULMONARY OEDEMA [None]
  - CARDIOMEGALY [None]
  - ESCHERICHIA URINARY TRACT INFECTION [None]
  - DYSPNOEA [None]
